FAERS Safety Report 14519666 (Version 1)
Quarter: 2018Q1

REPORT INFORMATION
  Report Type: Report from Study
  Country: US (occurrence: US)
  Receive Date: 20180212
  Receipt Date: 20180212
  Transmission Date: 20180509
  Serious: No
  Sender: FDA-Public Use
  Company Number: US-AMAG PHARMACEUTICALS, INC.-AMAG201700867

PATIENT

DRUGS (2)
  1. PRENATAL [Concomitant]
     Active Substance: VITAMINS
     Indication: PREGNANCY
     Dosage: 1 TABS, QD
     Dates: start: 201609
  2. MAKENA [Suspect]
     Active Substance: HYDROXYPROGESTERONE CAPROATE
     Indication: PREMATURE DELIVERY
     Dosage: 250 MG/ML, WEEKLY
     Route: 030
     Dates: start: 20161206

REACTIONS (2)
  - Temporomandibular joint syndrome [Recovered/Resolved]
  - Facial pain [Recovered/Resolved]

NARRATIVE: CASE EVENT DATE: 20170308
